FAERS Safety Report 10216335 (Version 2)
Quarter: 2014Q3

REPORT INFORMATION
  Report Type: Spontaneous
  Country: US (occurrence: US)
  Receive Date: 20140604
  Receipt Date: 20140716
  Transmission Date: 20150326
  Serious: Yes (Other)
  Sender: FDA-Public Use
  Company Number: US-PFIZER INC-2014149495

PATIENT
  Age: 56 Year
  Sex: Female

DRUGS (8)
  1. ASTELIN [Concomitant]
     Active Substance: AZELASTINE HYDROCHLORIDE
  2. CALCIUM WITH VITAMIN D [Concomitant]
     Active Substance: CALCIUM\VITAMIN D
  3. VITAMIN D [Concomitant]
     Active Substance: CHOLECALCIFEROL
  4. VAGIFEM [Concomitant]
     Active Substance: ESTRADIOL
  5. PREMARIN [Suspect]
     Active Substance: ESTROGENS, CONJUGATED
     Dosage: 0.5 G, 2X/WEEK
     Route: 067
  6. BISOPROLOL [Concomitant]
     Active Substance: BISOPROLOL
  7. EVOCLIN [Concomitant]
     Active Substance: CLINDAMYCIN PHOSPHATE
  8. BCG LIVE [Concomitant]
     Active Substance: BACILLUS CALMETTE-GUERIN SUBSTRAIN TICE LIVE ANTIGEN

REACTIONS (1)
  - Bladder cancer [Unknown]
